FAERS Safety Report 5192194-8 (Version None)
Quarter: 2006Q4

REPORT INFORMATION
  Report Type: 
  Country: None (occurrence: None)
  Receive Date: 20061220
  Receipt Date: 20061201
  Transmission Date: 20070319
  Serious: Yes (Death, Life-Threatening, Other)
  Sender: FDA-Public Use
  Company Number: 2006141340

PATIENT
  Age: 53 Year
  Sex: Female

DRUGS (5)
  1. METHYLPREDNISOLONE SODIUM SUCCINATE [Suspect]
     Indication: INTERSTITIAL LUNG DISEASE
     Dosage: (1 IN 2 D), INTRAVENOUS
     Route: 042
  2. PREDNISOLONE [Suspect]
     Indication: INTERSTITIAL LUNG DISEASE
     Dosage: (20 MG), ORAL
     Route: 048
     Dates: start: 20051019, end: 20051128
  3. PREDNISOLONE [Suspect]
     Indication: LYMPHANGIOSIS CARCINOMATOSA
     Dosage: (20 MG), ORAL
     Route: 048
     Dates: start: 20051019, end: 20051128
  4. IRINOTECAN HCL [Suspect]
     Indication: OVARIAN CANCER RECURRENT
     Dosage: 85 MG (60 MG/M2, DAY 1, 8 AND 15), INTRAVENOUS
     Route: 042
     Dates: start: 20050930, end: 20051121
  5. CISPLATIN [Concomitant]

REACTIONS (13)
  - CEREBRAL INFARCTION [None]
  - DIARRHOEA [None]
  - DYSARTHRIA [None]
  - GENERAL PHYSICAL HEALTH DETERIORATION [None]
  - HEMIPLEGIA [None]
  - INTERSTITIAL LUNG DISEASE [None]
  - LARGE INTESTINE PERFORATION [None]
  - LYMPHANGIOSIS CARCINOMATOSA [None]
  - MALIGNANT NEOPLASM PROGRESSION [None]
  - METASTASES TO LUNG [None]
  - METASTASES TO PERITONEUM [None]
  - PERICARDIAL EFFUSION [None]
  - PLEURAL EFFUSION [None]
